FAERS Safety Report 20341031 (Version 2)
Quarter: 2022Q1

REPORT INFORMATION
  Report Type: Spontaneous
  Country: US (occurrence: US)
  Receive Date: 20220117
  Receipt Date: 20220207
  Transmission Date: 20220423
  Serious: No
  Sender: FDA-Public Use
  Company Number: US-AMGEN-USASP2022004574

PATIENT
  Age: 70 Year
  Sex: Female

DRUGS (2)
  1. EVENITY [Suspect]
     Active Substance: ROMOSOZUMAB-AQQG
     Indication: Product used for unknown indication
     Dosage: UNK
     Route: 065
     Dates: start: 20211227
  2. COVID-19 VACCINE [Concomitant]
     Dosage: UNK

REACTIONS (10)
  - Abdominal distension [Recovering/Resolving]
  - Abdominal pain upper [Recovering/Resolving]
  - Gastrointestinal sounds abnormal [Recovering/Resolving]
  - Gastrooesophageal reflux disease [Recovering/Resolving]
  - Injection site pain [Recovered/Resolved]
  - Eye swelling [Recovering/Resolving]
  - Urticaria [Recovering/Resolving]
  - Feeling abnormal [Recovered/Resolved]
  - Weight increased [Recovering/Resolving]
  - Peripheral swelling [Recovered/Resolved]

NARRATIVE: CASE EVENT DATE: 20211227
